FAERS Safety Report 7960060-8 (Version None)
Quarter: 2011Q4

REPORT INFORMATION
  Report Type: 
  Country: None (occurrence: None)
  Receive Date: 20111206
  Receipt Date: 20111123
  Transmission Date: 20120403
  Serious: Yes (Other)
  Sender: FDA-Public Use
  Company Number: PHEH2011US010223

PATIENT
  Sex: Female

DRUGS (1)
  1. SANDOSTATIN [Suspect]
     Indication: METASTATIC CARCINOID TUMOUR

REACTIONS (4)
  - MESENTERIC LYMPHADENOPATHY [None]
  - SOFT TISSUE MASS [None]
  - HEPATIC LESION [None]
  - OSTEOARTHRITIS [None]
